FAERS Safety Report 6856141-2 (Version None)
Quarter: 2010Q3

REPORT INFORMATION
  Report Type: 
  Country: None (occurrence: None)
  Receive Date: 20100719
  Receipt Date: 20100706
  Transmission Date: 20110219
  Serious: No
  Sender: FDA-Public Use
  Company Number: US-PFIZER INC-2009157501

PATIENT
  Sex: Male

DRUGS (3)
  1. MICRONASE [Suspect]
     Dosage: UNK
  2. GLIBENCLAMIDE [Suspect]
     Dosage: UNK
  3. DIABETA [Suspect]
     Dosage: UNK

REACTIONS (2)
  - DRUG INEFFECTIVE [None]
  - GLYCOSYLATED HAEMOGLOBIN INCREASED [None]
